FAERS Safety Report 16992903 (Version 1)
Quarter: 2019Q4

REPORT INFORMATION
  Report Type: Spontaneous
  Country: GB (occurrence: GB)
  Receive Date: 20191105
  Receipt Date: 20191105
  Transmission Date: 20200122
  Serious: Yes (Hospitalization)
  Sender: FDA-Public Use
  Company Number: GB-JNJFOC-20191102165

PATIENT
  Age: 68 Year
  Sex: Male
  Weight: 66 kg

DRUGS (1)
  1. DARZALEX [Suspect]
     Active Substance: DARATUMUMAB
     Indication: PLASMA CELL MYELOMA
     Dosage: 4 DOSES
     Route: 042
     Dates: start: 20180611

REACTIONS (2)
  - Lower respiratory tract infection [Unknown]
  - Adenovirus infection [Not Recovered/Not Resolved]

NARRATIVE: CASE EVENT DATE: 20180717
